FAERS Safety Report 16714816 (Version 1)
Quarter: 2019Q3

REPORT INFORMATION
  Report Type: Spontaneous
  Country: US (occurrence: US)
  Receive Date: 20190819
  Receipt Date: 20190819
  Transmission Date: 20191005
  Serious: Yes (Other)
  Sender: FDA-Public Use
  Company Number: US-ROCHE-2372997

PATIENT
  Age: 43 Year
  Sex: Female

DRUGS (1)
  1. XOLAIR [Suspect]
     Active Substance: OMALIZUMAB
     Indication: ASTHMA
     Dosage: STRENGTH : 150 MG/ML
     Route: 058
     Dates: start: 20190519

REACTIONS (2)
  - Palpitations [Unknown]
  - Pruritus [Unknown]

NARRATIVE: CASE EVENT DATE: 20190610
